FAERS Safety Report 6082200-0 (Version None)
Quarter: 2009Q1

REPORT INFORMATION
  Report Type: 
  Country: None (occurrence: None)
  Receive Date: 20090218
  Receipt Date: 20090212
  Transmission Date: 20090719
  Serious: Yes (Hospitalization)
  Sender: FDA-Public Use
  Company Number: B0557648A

PATIENT
  Age: 57 Year
  Sex: Female

DRUGS (3)
  1. RELENZA [Suspect]
     Indication: INFLUENZA
     Dosage: 10MG TWICE PER DAY
     Route: 055
     Dates: start: 20090123, end: 20090125
  2. CHINESE MEDICINE [Concomitant]
     Dosage: 6G PER DAY
     Route: 048
     Dates: start: 20090123, end: 20090125
  3. CALONAL [Concomitant]
     Indication: PYREXIA
     Route: 048
     Dates: start: 20090123, end: 20090125

REACTIONS (3)
  - CONTUSION [None]
  - FALL [None]
  - SYNCOPE [None]
